FAERS Safety Report 20805575 (Version 2)
Quarter: 2022Q2

REPORT INFORMATION
  Report Type: Spontaneous
  Country: GB (occurrence: GB)
  Receive Date: 20220510
  Receipt Date: 20220614
  Transmission Date: 20220721
  Serious: Yes (Other)
  Sender: FDA-Public Use
  Company Number: GB-JNJFOC-20220440558

PATIENT
  Age: 84 Year
  Sex: Male

DRUGS (2)
  1. ABIRATERONE [Suspect]
     Active Substance: ABIRATERONE
     Indication: Prostate cancer
     Dosage: 1000 MILLIGRAM, UNK, TABLET
     Route: 048
     Dates: start: 20220323
  2. PREDNISOLONE [Concomitant]
     Active Substance: PREDNISOLONE
     Indication: Prostate cancer
     Dosage: 10 MILLIGRAM, UNK
     Route: 048
     Dates: start: 20220323

REACTIONS (7)
  - Blood alkaline phosphatase increased [Recovering/Resolving]
  - Prostatic specific antigen increased [Recovering/Resolving]
  - Alanine aminotransferase increased [Recovering/Resolving]
  - Oedema peripheral [Recovering/Resolving]
  - Dementia [Unknown]
  - Fall [Recovering/Resolving]
  - Dizziness [Recovering/Resolving]

NARRATIVE: CASE EVENT DATE: 20220412
